FAERS Safety Report 9441237 (Version 2)
Quarter: 2013Q3

REPORT INFORMATION
  Report Type: Spontaneous
  Country: IT (occurrence: IT)
  Receive Date: 20130805
  Receipt Date: 20130930
  Transmission Date: 20140515
  Serious: Yes (Hospitalization)
  Sender: FDA-Public Use
  Company Number: IT-FRI-1000047356

PATIENT
  Age: 65 Year
  Sex: Male

DRUGS (5)
  1. NEBIVOLOL [Suspect]
     Indication: HYPERTENSION
     Dosage: 5 MG
     Route: 048
     Dates: start: 20130501, end: 20130716
  2. BASSADO [Suspect]
     Indication: PROPHYLAXIS
     Dosage: 100 MG
     Route: 048
     Dates: start: 20130605, end: 20130630
  3. TARCEVA [Concomitant]
  4. TEGRETOL [Concomitant]
  5. PARIET [Concomitant]

REACTIONS (1)
  - Dermatitis exfoliative [Recovered/Resolved]
